FAERS Safety Report 9851272 (Version 2)
Quarter: 2014Q1

REPORT INFORMATION
  Report Type: Report from Study
  Country: US (occurrence: US)
  Receive Date: 20140128
  Receipt Date: 20140130
  Transmission Date: 20141002
  Serious: Yes (Death)
  Sender: FDA-Public Use
  Company Number: US-ROCHE-1341154

PATIENT
  Age: 62 Year
  Sex: Male
  Weight: 139.38 kg

DRUGS (3)
  1. AVASTIN [Suspect]
     Indication: BLADDER CANCER
     Route: 042
     Dates: start: 20140113
  2. CISPLATIN [Concomitant]
     Indication: BLADDER CANCER
     Route: 042
     Dates: start: 20131104, end: 20140113
  3. GEMZAR [Concomitant]
     Indication: BLADDER CANCER
     Route: 042
     Dates: start: 20131104, end: 20140113

REACTIONS (1)
  - Pulmonary embolism [Fatal]
